FAERS Safety Report 16415507 (Version 4)
Quarter: 2019Q3

REPORT INFORMATION
  Report Type: Spontaneous
  Country: US (occurrence: US)
  Receive Date: 20190611
  Receipt Date: 20190708
  Transmission Date: 20191004
  Serious: Yes (Other)
  Sender: FDA-Public Use
  Company Number: US-SA-2019SA154176

PATIENT
  Age: 52 Year
  Sex: Female

DRUGS (8)
  1. DULERA [Concomitant]
     Active Substance: FORMOTEROL FUMARATE DIHYDRATE\MOMETASONE FUROATE
  2. DUPIXENT [Suspect]
     Active Substance: DUPILUMAB
     Indication: DERMATITIS ATOPIC
     Dosage: 300 MG, QOW
     Route: 058
     Dates: start: 20180401, end: 201905
  3. NITROFURANTOIN MONOHYDRATE MACROCRYSTALS [Concomitant]
     Active Substance: NITROFURANTOIN\NITROFURANTOIN MONOHYDRATE
  4. TRIAMCINOLONE ACETONIDE. [Concomitant]
     Active Substance: TRIAMCINOLONE ACETONIDE
  5. LISINOPRIL. [Concomitant]
     Active Substance: LISINOPRIL
  6. ATORVASTATIN CALCIUM. [Concomitant]
     Active Substance: ATORVASTATIN CALCIUM
  7. PROAIR HFA [Concomitant]
     Active Substance: ALBUTEROL SULFATE
  8. TACROLIMUS. [Concomitant]
     Active Substance: TACROLIMUS

REACTIONS (8)
  - Cold sweat [Recovered/Resolved]
  - Carditis [Unknown]
  - Generalised erythema [Unknown]
  - Erythema [Recovered/Resolved]
  - Pyrexia [Unknown]
  - Feeling abnormal [Unknown]
  - Hyperhidrosis [Recovered/Resolved]
  - Influenza [Recovered/Resolved]

NARRATIVE: CASE EVENT DATE: 20190529
